FAERS Safety Report 8508939 (Version 4)
Quarter: 2013Q2

REPORT INFORMATION
  Report Type: Spontaneous
  Country: US (occurrence: US)
  Receive Date: 20120412
  Receipt Date: 20130502
  Transmission Date: 20140414
  Serious: Yes (Other)
  Sender: FDA-Public Use
  Company Number: US-ASTRAZENECA-2012SE00420

PATIENT
  Age: 68 Year
  Sex: Female

DRUGS (2)
  1. NEXIUM [Suspect]
     Dosage: EVERY OTHER DAY INSTEAD OF ONCE A DAY AS PRESCRIBED
     Route: 048
  2. NEXIUM [Suspect]
     Route: 048

REACTIONS (10)
  - Colon cancer [Unknown]
  - Intervertebral disc disorder [Unknown]
  - Barrett^s oesophagus [Unknown]
  - Gastrooesophageal reflux disease [Unknown]
  - Mobility decreased [Unknown]
  - Dyspepsia [Unknown]
  - Feeling abnormal [Unknown]
  - Regurgitation [Unknown]
  - Intentional drug misuse [Unknown]
  - Drug dose omission [Unknown]
